FAERS Safety Report 8183722-9 (Version None)
Quarter: 2012Q1

REPORT INFORMATION
  Report Type: 
  Country: None (occurrence: None)
  Receive Date: 20120305
  Receipt Date: 20120224
  Transmission Date: 20120608
  Serious: Yes (Other)
  Sender: FDA-Public Use
  Company Number: US-JNJFOC-20120213558

PATIENT
  Age: 72 Year
  Sex: Male

DRUGS (2)
  1. PAIN MEDICATION [Concomitant]
     Indication: KNEE ARTHROPLASTY
     Dates: start: 20120201
  2. XARELTO [Suspect]
     Indication: KNEE ARTHROPLASTY
     Route: 048
     Dates: start: 20120201

REACTIONS (1)
  - PLATELET COUNT DECREASED [None]
